FAERS Safety Report 23296767 (Version 2)
Quarter: 2023Q4

REPORT INFORMATION
  Report Type: Spontaneous
  Country: BG (occurrence: BG)
  Receive Date: 20231214
  Receipt Date: 20231218
  Transmission Date: 20240110
  Serious: Yes (Hospitalization)
  Sender: FDA-Public Use
  Company Number: BG-PFIZER INC-PV202300198775

PATIENT
  Age: 63 Year
  Sex: Female

DRUGS (2)
  1. MEDROL [Suspect]
     Active Substance: METHYLPREDNISOLONE
  2. FEBUXOSTAT [Suspect]
     Active Substance: FEBUXOSTAT

REACTIONS (4)
  - Hypertensive urgency [Recovered/Resolved]
  - Frequent bowel movements [Unknown]
  - Hyperaemia [Unknown]
  - Cushingoid [Unknown]

NARRATIVE: CASE EVENT DATE: 20220201
